FAERS Safety Report 19180575 (Version 1)
Quarter: 2021Q2

REPORT INFORMATION
  Report Type: Report from Study
  Country: IR (occurrence: IR)
  Receive Date: 20210426
  Receipt Date: 20210426
  Transmission Date: 20210717
  Serious: Yes (Death, Other)
  Sender: FDA-Public Use
  Company Number: IR-ASTELLAS-2021US014623

PATIENT
  Age: 49 Year
  Sex: Male

DRUGS (1)
  1. AMPHOTERICIN B, LIPOSOME [Suspect]
     Active Substance: AMPHOTERICIN B
     Indication: CUTANEOUS MUCORMYCOSIS
     Route: 065

REACTIONS (1)
  - Drug ineffective [Fatal]
